FAERS Safety Report 7973591-1 (Version None)
Quarter: 2011Q4

REPORT INFORMATION
  Report Type: 
  Country: None (occurrence: None)
  Receive Date: 20111202
  Receipt Date: 20111118
  Transmission Date: 20120403
  Serious: Yes (Hospitalization)
  Sender: FDA-Public Use
  Company Number: KR-JNJFOC-20111006796

PATIENT
  Age: 38 Year
  Sex: Female
  Weight: 62 kg

DRUGS (8)
  1. CHLORHEXIDINE GLUCONATE [Concomitant]
  2. ACETAMINOPHEN [Concomitant]
  3. DECITABINE [Suspect]
     Indication: MYELODYSPLASTIC SYNDROME
     Dosage: SEE IMAGE, INTRAVENOUS
     Route: 042
     Dates: start: 20110728, end: 20110730
  4. DECITABINE [Suspect]
     Indication: MYELODYSPLASTIC SYNDROME
     Dosage: SEE IMAGE, INTRAVENOUS
     Route: 042
     Dates: start: 20110926, end: 20110930
  5. DECITABINE [Suspect]
     Indication: MYELODYSPLASTIC SYNDROME
     Dosage: SEE IMAGE, INTRAVENOUS
     Route: 042
     Dates: start: 20110801, end: 20110802
  6. DECITABINE [Suspect]
     Indication: MYELODYSPLASTIC SYNDROME
     Dosage: SEE IMAGE, INTRAVENOUS
     Route: 042
     Dates: start: 20110829, end: 20110902
  7. POVIDONE IODINE [Concomitant]
  8. HEXOMEDINE (HEXOMEDINE) [Concomitant]

REACTIONS (9)
  - RESPIRATORY RATE INCREASED [None]
  - NEUTROPHIL COUNT DECREASED [None]
  - ABDOMINAL DISTENSION [None]
  - URINE OUTPUT DECREASED [None]
  - BLOOD PRESSURE DECREASED [None]
  - BODY TEMPERATURE INCREASED [None]
  - HEPATOSPLENOMEGALY [None]
  - ENTEROCOLITIS [None]
  - SPLENIC INFARCTION [None]
